FAERS Safety Report 8576212-2 (Version None)
Quarter: 2012Q3

REPORT INFORMATION
  Report Type: 
  Country: None (occurrence: None)
  Receive Date: 20120807
  Receipt Date: 20120727
  Transmission Date: 20120928
  Serious: Yes (Hospitalization, Other)
  Sender: FDA-Public Use
  Company Number: JP-009507513-2012SP021357

PATIENT

DRUGS (21)
  1. HIRUDOID [Concomitant]
     Dosage: PROPER QUANTITY/DAY
     Route: 061
     Dates: start: 20120113, end: 20120413
  2. ANTIVIRAL (UNSPECIFIED) [Suspect]
     Indication: HEPATITIS C
     Dosage: 1500 MG, QD
     Route: 048
     Dates: start: 20120113, end: 20120406
  3. PEGINTERFERON ALFA-2B [Suspect]
     Indication: HEPATITIS C
     Dosage: 1.5 MICROGRAM PER KILOGRAM, QW
     Route: 058
     Dates: start: 20120113
  4. REBETOL [Suspect]
     Dosage: 200 MG, QD
     Route: 048
     Dates: start: 20120316, end: 20120319
  5. REBETOL [Suspect]
     Dosage: 200MG/TWICE A WEEK ON MONDAY AND FRIDAY
     Route: 048
     Dates: start: 20120330, end: 20120405
  6. PRIMPERAN TAB [Concomitant]
     Indication: PRODUCT USED FOR UNKNOWN INDICATION
     Dosage: 30 MG, QD
     Route: 048
  7. LOXONIN [Concomitant]
     Indication: PROPHYLAXIS
     Dosage: UPDATE(24MAY2012):FORM:POR
     Route: 048
     Dates: start: 20120113, end: 20120123
  8. LEVOFLOXACIN [Concomitant]
     Indication: CYSTITIS
     Dosage: UPDATE(24MAY2012):
     Route: 048
     Dates: start: 20120203, end: 20120206
  9. ZOLPIDEM [Concomitant]
     Indication: INSOMNIA
     Dosage: UPDATE(24MAY2012):
     Route: 048
     Dates: start: 20120122
  10. REBETOL [Suspect]
     Dosage: 200 MG, ONCE
     Route: 048
     Dates: start: 20120420, end: 20120426
  11. REBETOL [Suspect]
     Indication: HEPATITIS C
     Dosage: 800 MG, QD
     Route: 048
     Dates: start: 20120113, end: 20120301
  12. REBETOL [Suspect]
     Dosage: 200MG/EVERY OTHER DAY
     Route: 048
     Dates: start: 20120406, end: 20120419
  13. HIRUDOID [Concomitant]
     Indication: PROPHYLAXIS
     Dosage: UPDATE(24MAY2012): FORM: OIT, DOSAGE: PROPER QUANTITY
     Route: 051
     Dates: start: 20120113
  14. ALLOPURINOL [Concomitant]
     Indication: PRODUCT USED FOR UNKNOWN INDICATION
     Dosage: UPDATE(24MAY2012):
     Route: 048
     Dates: start: 20120224
  15. REBETOL [Suspect]
     Dosage: 200 MG, QOD
     Route: 048
     Dates: start: 20120406
  16. REBETOL [Suspect]
     Dosage: 400 MG, ONCE
     Route: 048
     Dates: start: 20120427, end: 20120614
  17. REBETOL [Suspect]
     Dosage: 600 MG, ONCE
     Route: 048
     Dates: start: 20120615, end: 20120629
  18. REBETOL [Suspect]
     Dosage: 400 MG, QD
     Route: 048
     Dates: start: 20120302, end: 20120315
  19. PEG-INTRON [Suspect]
     Indication: HEPATITIS C
     Dosage: 1. MICROGRAM PER KILOGRAM PER WEEK
     Route: 058
     Dates: start: 20120113, end: 20120629
  20. TELAVIC [Suspect]
     Indication: HEPATITIS C
     Dosage: 1500 MG, ONCE
     Route: 048
     Dates: start: 20120113, end: 20120406
  21. NEXIUM [Concomitant]
     Indication: PRODUCT USED FOR UNKNOWN INDICATION
     Dosage: UPDATE(24MAY2012):
     Route: 048
     Dates: start: 20120224

REACTIONS (3)
  - WHITE BLOOD CELL COUNT DECREASED [None]
  - ORTHOSTATIC HYPOTENSION [None]
  - HAEMOGLOBIN DECREASED [None]
